FAERS Safety Report 19666894 (Version 2)
Quarter: 2021Q3

REPORT INFORMATION
  Report Type: Spontaneous
  Country: JP (occurrence: JP)
  Receive Date: 20210806
  Receipt Date: 20210908
  Transmission Date: 20211014
  Serious: Yes (Other)
  Sender: FDA-Public Use
  Company Number: JP-GLAXOSMITHKLINE-JP2021029836

PATIENT
  Age: 17 Year
  Sex: Female

DRUGS (2)
  1. ZEJULA [Suspect]
     Active Substance: NIRAPARIB
     Dosage: 100 MILLIGRAM
     Route: 048
     Dates: start: 20210125
  2. ZEJULA [Suspect]
     Active Substance: NIRAPARIB
     Indication: OVARIAN CANCER
     Dosage: 200 MILLIGRAM
     Route: 048
     Dates: end: 20210106

REACTIONS (8)
  - Platelet count decreased [Recovered/Resolved]
  - Ovarian cancer [Unknown]
  - Neutrophil count decreased [Recovered/Resolved]
  - Off label use [Unknown]
  - Disease progression [Unknown]
  - Decreased appetite [Unknown]
  - Product administered to patient of inappropriate age [Unknown]
  - Interstitial lung disease [Recovered/Resolved]

NARRATIVE: CASE EVENT DATE: 20201221
